FAERS Safety Report 17453884 (Version 2)
Quarter: 2020Q3

REPORT INFORMATION
  Report Type: Spontaneous
  Country: US (occurrence: US)
  Receive Date: 20200224
  Receipt Date: 20200915
  Transmission Date: 20201102
  Serious: Yes (Other)
  Sender: FDA-Public Use
  Company Number: US-TASMAN PHARMA, INC.-2020TSM00060

PATIENT
  Age: 26 Year
  Sex: Female
  Weight: 92.97 kg

DRUGS (6)
  1. DEPAKOTE [Concomitant]
     Active Substance: DIVALPROEX SODIUM
  2. HALDOL DECANOATE [Concomitant]
     Active Substance: HALOPERIDOL DECANOATE
  3. CLOZAPINE ODT TABLET (TEVA) [Suspect]
     Active Substance: CLOZAPINE
     Indication: SCHIZOAFFECTIVE DISORDER BIPOLAR TYPE
     Dosage: 150 MG, 1X/DAY AT BEDTIME
     Dates: start: 20200210, end: 20200213
  4. CLOZAPINE. [Suspect]
     Active Substance: CLOZAPINE
  5. CLOZAPINE ODT TABLET (TEVA) [Suspect]
     Active Substance: CLOZAPINE
     Dosage: 200 MG, 1X/DAY AT BEDTIME
     Dates: start: 20200410
  6. ZYPREXA [Concomitant]
     Active Substance: OLANZAPINE

REACTIONS (3)
  - Tension headache [Unknown]
  - Neutropenia [Recovered/Resolved]
  - Tooth fracture [Unknown]

NARRATIVE: CASE EVENT DATE: 20200211
